FAERS Safety Report 16979990 (Version 1)
Quarter: 2019Q4

REPORT INFORMATION
  Report Type: Spontaneous
  Country: CN (occurrence: CN)
  Receive Date: 20191031
  Receipt Date: 20191031
  Transmission Date: 20200122
  Serious: Yes (Hospitalization)
  Sender: FDA-Public Use
  Company Number: CN-BAYER-2019-191015

PATIENT
  Sex: Female

DRUGS (1)
  1. YASMIN [Suspect]
     Active Substance: DROSPIRENONE\ETHINYL ESTRADIOL
     Route: 048

REACTIONS (7)
  - Weight increased [None]
  - Pigmentation disorder [None]
  - Incorrect product administration duration [None]
  - Inappropriate schedule of product administration [None]
  - Abnormal withdrawal bleeding [None]
  - Product dose omission [None]
  - Syncope [None]

NARRATIVE: CASE EVENT DATE: 201909
